FAERS Safety Report 8922378 (Version 1)
Quarter: 2012Q4

REPORT INFORMATION
  Report Type: 
  Country: CN (occurrence: CN)
  Receive Date: 20121126
  Receipt Date: 20121126
  Transmission Date: 20130627
  Serious: Yes (Hospitalization)
  Sender: FDA-Public Use
  Company Number: CN-JNJFOC-20121109114

PATIENT
  Age: 4 Year
  Sex: Female
  Weight: 17.5 kg

DRUGS (2)
  1. CHILDREN^S MOTRIN [Suspect]
     Route: 048
  2. CHILDREN^S MOTRIN [Suspect]
     Indication: PYREXIA
     Dosage: 5 ml
     Route: 048
     Dates: start: 20121115, end: 20121116

REACTIONS (2)
  - Drug ineffective [Not Recovered/Not Resolved]
  - Product counterfeit [Unknown]
